FAERS Safety Report 4474644-5 (Version None)
Quarter: 2004Q4

REPORT INFORMATION
  Report Type: 
  Country: None (occurrence: None)
  Receive Date: 20041012
  Receipt Date: 20041005
  Transmission Date: 20050328
  Serious: Yes (Other)
  Sender: FDA-Public Use
  Company Number: GBWYE964811AUG04

PATIENT
  Age: 26 Year
  Sex: Female

DRUGS (9)
  1. RAPAMUNE [Suspect]
     Indication: IMMUNOSUPPRESSANT DRUG THERAPY
     Dosage: 5 MG 1X PER 1 DAY, ORAL
     Route: 048
     Dates: start: 20040505
  2. OMEPRAZOLE [Concomitant]
  3. ASPIRIN [Concomitant]
  4. ARANESP [Concomitant]
  5. FUROSEMIDE [Concomitant]
  6. INSULIN [Concomitant]
  7. GABAPENTIN [Concomitant]
  8. ETYNODIOL DIACETATE [Concomitant]
  9. FERROUS SULPHATE (FERROUS SULFATE) [Concomitant]

REACTIONS (2)
  - ARTHRALGIA [None]
  - JOINT SWELLING [None]
